FAERS Safety Report 17804722 (Version 1)
Quarter: 2020Q2

REPORT INFORMATION
  Report Type: Spontaneous
  Country: FR (occurrence: FR)
  Receive Date: 20200519
  Receipt Date: 20200519
  Transmission Date: 20200714
  Serious: Yes (Hospitalization)
  Sender: FDA-Public Use
  Company Number: NVSC2020FR135749

PATIENT
  Age: 74 Year
  Sex: Male
  Weight: 78 kg

DRUGS (10)
  1. AUGMENTIN [Suspect]
     Active Substance: AMOXICILLIN\CLAVULANATE POTASSIUM
     Indication: DERMO-HYPODERMITIS
     Route: 048
     Dates: start: 20200123, end: 20200211
  2. CLARITHROMYCINE SANDOZ 500 MG FILMOMHULDE TABLETTEN [Suspect]
     Active Substance: CLARITHROMYCIN
     Indication: MYCOBACTERIAL INFECTION
     Dosage: 1000 MG, QD
     Route: 048
     Dates: start: 20200121, end: 20200211
  3. GENVOYA [Concomitant]
     Active Substance: COBICISTAT\ELVITEGRAVIR\EMTRICITABINE\TENOFOVIR ALAFENAMIDE FUMARATE
     Indication: PRODUCT USED FOR UNKNOWN INDICATION
     Dosage: UNK (150 MG/150 MG/200 MG/10 MG, COMPRIM? PELLICUL? )
     Route: 065
  4. ELIQUIS [Suspect]
     Active Substance: APIXABAN
     Indication: OEDEMA PERIPHERAL
     Dosage: 10 MG, QD
     Route: 048
     Dates: start: 20200123, end: 20200211
  5. AUGMENTIN [Suspect]
     Active Substance: AMOXICILLIN\CLAVULANATE POTASSIUM
     Dosage: UNK (POSOLOGIE INCONNUE)
     Route: 048
     Dates: start: 20200123, end: 20200211
  6. MOXIFLOXACINE SANDOZ 400 MG, FILMOMHULDE TABLETTEN [Suspect]
     Active Substance: MOXIFLOXACIN HYDROCHLORIDE
     Indication: MYCOBACTERIAL INFECTION
     Dosage: 800 MG, QD
     Route: 048
     Dates: start: 20200121, end: 20200211
  7. DARUNAVIR [Concomitant]
     Active Substance: DARUNAVIR
     Indication: PRODUCT USED FOR UNKNOWN INDICATION
     Dosage: UNK
     Route: 065
  8. DEXAMBUTOL [Suspect]
     Active Substance: ETHAMBUTOL HYDROCHLORIDE
     Indication: MYCOBACTERIAL INFECTION
     Dosage: 1500 MG, QD
     Route: 048
     Dates: start: 20200121, end: 20200211
  9. CRESTOR [Concomitant]
     Active Substance: ROSUVASTATIN CALCIUM
     Indication: PRODUCT USED FOR UNKNOWN INDICATION
     Dosage: 10 MG (COMPRIM? PELLICUL? )
     Route: 065
  10. BACTRIM [Suspect]
     Active Substance: SULFAMETHOXAZOLE\TRIMETHOPRIM
     Indication: MYCOBACTERIAL INFECTION
     Dosage: 2 DF, QD
     Route: 048
     Dates: start: 20200121, end: 20200211

REACTIONS (2)
  - Blood creatinine increased [Recovered/Resolved]
  - Erythema [Recovered/Resolved]

NARRATIVE: CASE EVENT DATE: 20200209
